FAERS Safety Report 7557719-3 (Version None)
Quarter: 2011Q2

REPORT INFORMATION
  Report Type: 
  Country: None (occurrence: None)
  Receive Date: 20110620
  Receipt Date: 20110609
  Transmission Date: 20111010
  Serious: Yes (Hospitalization)
  Sender: FDA-Public Use
  Company Number: US-JNJFOC-20110605430

PATIENT
  Sex: Male

DRUGS (5)
  1. THORAZINE [Concomitant]
     Route: 065
  2. INVEGA SUSTENNA [Suspect]
     Indication: SCHIZOPHRENIA
     Route: 030
     Dates: start: 20110525
  3. LITHIUM CARBONATE [Concomitant]
     Route: 065
  4. INVEGA [Suspect]
     Indication: SCHIZOPHRENIA
     Route: 048
     Dates: start: 20110518
  5. INVEGA [Suspect]
     Route: 048
     Dates: start: 20110601

REACTIONS (8)
  - DELUSION [None]
  - PSYCHOTIC DISORDER [None]
  - PARANOIA [None]
  - PALPITATIONS [None]
  - RESTLESSNESS [None]
  - PRODUCT QUALITY ISSUE [None]
  - DYSPEPSIA [None]
  - INSOMNIA [None]
